FAERS Safety Report 20485857 (Version 2)
Quarter: 2022Q1

REPORT INFORMATION
  Report Type: Spontaneous
  Country: TH (occurrence: TH)
  Receive Date: 20220217
  Receipt Date: 20220304
  Transmission Date: 20220424
  Serious: Yes (Other)
  Sender: FDA-Public Use
  Company Number: TH-TEVA-2022-TH-2007123

PATIENT
  Age: 63 Year
  Sex: Female

DRUGS (4)
  1. LEUCOVORIN [Suspect]
     Active Substance: LEUCOVORIN
     Indication: Colorectal cancer
     Dosage: FOR TWO HOURS ON DAY 1 AND 2
     Route: 041
  2. ELOXATIN [Suspect]
     Active Substance: OXALIPLATIN
     Indication: Colorectal cancer
     Dosage: FOR TWO HOURS ON DAY 1
     Route: 041
  3. FLUOROURACIL [Suspect]
     Active Substance: FLUOROURACIL
     Indication: Colorectal cancer
     Dosage: SHORT INFUSION ON DAY 1 AND 2
     Route: 041
  4. FLUOROURACIL [Suspect]
     Active Substance: FLUOROURACIL
     Indication: Colorectal cancer
     Dosage: FOR 22 HOURS ON DAYS 1 AND 2
     Route: 041

REACTIONS (1)
  - Cerebral venous sinus thrombosis [Recovered/Resolved]
